FAERS Safety Report 18963394 (Version 2)
Quarter: 2021Q3

REPORT INFORMATION
  Report Type: Report from Study
  Country: DE (occurrence: DE)
  Receive Date: 20210303
  Receipt Date: 20210714
  Transmission Date: 20211014
  Serious: Yes (Death, Hospitalization)
  Sender: FDA-Public Use
  Company Number: DE-ROCHE-2760464

PATIENT
  Age: 64 Year
  Sex: Male
  Weight: 85 kg

DRUGS (1)
  1. ATEZOLIZUMAB. [Suspect]
     Active Substance: ATEZOLIZUMAB
     Indication: SMALL CELL LUNG CANCER EXTENSIVE STAGE
     Dosage: FIXED DOSE OF 1,200 MG AS AN IV INFUSION, ON DAY 1, TO BE REPEATED EVERY 3 WEEKS (Q3W) (AS PER PROTO
     Route: 041
     Dates: start: 20201118

REACTIONS (3)
  - Blood creatinine increased [Recovering/Resolving]
  - Dehydration [Not Recovered/Not Resolved]
  - Hepatic failure [Fatal]

NARRATIVE: CASE EVENT DATE: 20210127
